FAERS Safety Report 25475091 (Version 1)
Quarter: 2025Q2

REPORT INFORMATION
  Report Type: Spontaneous
  Country: DE (occurrence: DE)
  Receive Date: 20250624
  Receipt Date: 20250624
  Transmission Date: 20250717
  Serious: Yes (Hospitalization)
  Sender: Harrow Health
  Company Number: DE-HARROW-HAR-2025-DE-00258

PATIENT
  Age: 47 Year
  Sex: Female

DRUGS (1)
  1. VERKAZIA [Suspect]
     Active Substance: CYCLOSPORINE
     Indication: Dry eye
     Route: 047
     Dates: start: 20250516, end: 20250516

REACTIONS (1)
  - Butterfly rash [Unknown]

NARRATIVE: CASE EVENT DATE: 20250516
